FAERS Safety Report 12114700 (Version 1)
Quarter: 2016Q1

REPORT INFORMATION
  Report Type: Report from Study
  Country: US (occurrence: US)
  Receive Date: 20160225
  Receipt Date: 20160225
  Transmission Date: 20160526
  Serious: Yes (Other)
  Sender: FDA-Public Use
  Company Number: US-BAYER-2016-014939

PATIENT
  Age: 68 Year
  Sex: Male
  Weight: 85.71 kg

DRUGS (17)
  1. ADVIL [Concomitant]
     Active Substance: IBUPROFEN
  2. METFORMIN [Concomitant]
     Active Substance: METFORMIN HYDROCHLORIDE
  3. LISINOPRIL. [Concomitant]
     Active Substance: LISINOPRIL
  4. MOVIPREP [Concomitant]
     Active Substance: ASCORBIC ACID\POLYETHYLENE GLYCOL 3350\POTASSIUM CHLORIDE\SODIUM ASCORBATE\SODIUM CHLORIDE\SODIUM SULFATE
  5. STIVARGA [Suspect]
     Active Substance: REGORAFENIB
     Indication: COLON CANCER
     Dosage: 160 MG, QD FOR 3 WEEK ON  AND 1 WEEK OFF
     Route: 048
     Dates: start: 20160120, end: 20160124
  6. TRAVATAN [Concomitant]
     Active Substance: TRAVOPROST
  7. STIVARGA [Suspect]
     Active Substance: REGORAFENIB
     Indication: COLON CANCER
     Dosage: 80 MG, QD
     Route: 048
     Dates: end: 20160215
  8. VICKS DAYQUIL [DEXTROMET HBR,GUAIF,PARACET,PSEUDOEPH HCL] [Concomitant]
  9. TOPROL XL [Concomitant]
     Active Substance: METOPROLOL SUCCINATE
  10. COLACE [Concomitant]
     Active Substance: DOCUSATE SODIUM
  11. ZANTAC [Concomitant]
     Active Substance: RANITIDINE HYDROCHLORIDE
  12. TRIAMTERENE AND HYDROCHLOROTHIAZIDE [Concomitant]
     Active Substance: HYDROCHLOROTHIAZIDE\TRIAMTERENE
  13. LOPERAMIDE [Concomitant]
     Active Substance: LOPERAMIDE
  14. VITAMIN D [Concomitant]
     Active Substance: CHOLECALCIFEROL
  15. ALEVE [Concomitant]
     Active Substance: NAPROXEN SODIUM
  16. CAPECITABINE. [Concomitant]
     Active Substance: CAPECITABINE
  17. TRIAMCINOLONE ACETONIDE. [Concomitant]
     Active Substance: TRIAMCINOLONE ACETONIDE

REACTIONS (9)
  - Pain in extremity [Unknown]
  - Aphonia [Unknown]
  - Back pain [Unknown]
  - Pain [Unknown]
  - Fine motor skill dysfunction [Unknown]
  - Arthralgia [Unknown]
  - Erythema [Unknown]
  - Peripheral swelling [Unknown]
  - Abdominal discomfort [None]

NARRATIVE: CASE EVENT DATE: 20160120
